FAERS Safety Report 5751108-X (Version None)
Quarter: 2008Q2

REPORT INFORMATION
  Report Type: 
  Country: None (occurrence: None)
  Receive Date: 20080528
  Receipt Date: 20080517
  Transmission Date: 20081010
  Serious: Yes (Other)
  Sender: FDA-Public Use
  Company Number: AU-ELI_LILLY_AND_COMPANY-AU200805003440

PATIENT
  Sex: Male

DRUGS (3)
  1. STRATTERA [Suspect]
     Dosage: 10 MG, UNKNOWN
     Route: 048
  2. STRATTERA [Suspect]
     Dosage: 18 MG, UNKNOWN
     Route: 048
  3. FLUOXETINE HCL [Suspect]
     Indication: DEPRESSION
     Dosage: UNK, UNKNOWN
     Route: 065

REACTIONS (1)
  - SUICIDAL IDEATION [None]
